FAERS Safety Report 9925053 (Version 1)
Quarter: 2014Q1

REPORT INFORMATION
  Report Type: Spontaneous
  Country: US (occurrence: US)
  Receive Date: 20140226
  Receipt Date: 20140226
  Transmission Date: 20141002
  Serious: Yes (Hospitalization, Other)
  Sender: FDA-Public Use
  Company Number: US-ACTAVIS-2014-02962

PATIENT
  Age: 28 Year
  Sex: Male

DRUGS (7)
  1. CLONIDINE (WATSON LABORATORIES) [Suspect]
     Indication: SUICIDE ATTEMPT
     Dosage: MULTIPLE PILLS, OVERDOSE (EXACT DOSE UNKNOWN)
     Route: 048
  2. CLONIDINE (WATSON LABORATORIES) [Interacting]
     Dosage: 0.9 MG, DAILY
     Route: 048
  3. CLONAZEPAM (AELLC) [Interacting]
     Indication: SUICIDE ATTEMPT
     Dosage: 16 DF (16 PILLS)
     Route: 048
  4. CLONAZEPAM (AELLC) [Interacting]
     Dosage: 10 MG TO 20 MG DAILY
     Route: 048
  5. METHADONE [Interacting]
     Indication: SUBSTANCE ABUSE
     Dosage: UNK
     Route: 065
  6. PHENCYCLIDINE [Concomitant]
     Indication: PRODUCT USED FOR UNKNOWN INDICATION
     Dosage: UNK
     Route: 065
  7. QUETIAPINE [Concomitant]
     Indication: PRODUCT USED FOR UNKNOWN INDICATION
     Dosage: 200 MG, DAILY
     Route: 065

REACTIONS (12)
  - Sinus bradycardia [Recovered/Resolved]
  - Respiratory acidosis [Recovered/Resolved]
  - Hypercapnia [Recovered/Resolved]
  - Suicide attempt [Recovered/Resolved]
  - Intentional overdose [Recovered/Resolved]
  - Drug abuse [Unknown]
  - Drug effect increased [Unknown]
  - Drug effect prolonged [Unknown]
  - Drug withdrawal syndrome [Unknown]
  - Agitation [Unknown]
  - Withdrawal hypertension [Recovered/Resolved]
  - Drug interaction [Unknown]
